FAERS Safety Report 15233224 (Version 1)
Quarter: 2018Q4

REPORT INFORMATION
  Report Type: Spontaneous
  Country: IT (occurrence: IT)
  Receive Date: 20180802
  Receipt Date: 20180802
  Transmission Date: 20190204
  Serious: Yes (Other)
  Sender: FDA-Public Use
  Company Number: IT-TEVA-2018-IT-933217

PATIENT
  Age: 62 Year
  Sex: Female
  Weight: 60 kg

DRUGS (2)
  1. XELODA 500 MG FILM-COATED TABLETS [Concomitant]
     Indication: ANAL CANCER
     Dosage: 2000 MILLIGRAM DAILY;
     Dates: start: 20180312
  2. CISPLATINO TEVA ITALIA 1 MG/ML CONCENTRATO PER SOLUZIONE PER INFUSIONE [Suspect]
     Active Substance: CISPLATIN
     Indication: ANAL CANCER
     Route: 065
     Dates: start: 20180312

REACTIONS (4)
  - Erythema [Recovered/Resolved]
  - Face oedema [Recovered/Resolved]
  - Pruritus generalised [Recovered/Resolved]
  - Dry mouth [Recovered/Resolved]

NARRATIVE: CASE EVENT DATE: 20180521
